FAERS Safety Report 8966615 (Version 1)
Quarter: 2012Q4

REPORT INFORMATION
  Report Type: 
  Country: US (occurrence: US)
  Receive Date: 20121217
  Receipt Date: 20121217
  Transmission Date: 20130627
  Serious: Yes (Hospitalization)
  Sender: FDA-Public Use
  Company Number: US-ELI_LILLY_AND_COMPANY-US201111007277

PATIENT
  Sex: Female

DRUGS (2)
  1. FORTEO [Suspect]
     Indication: OSTEOPOROSIS
     Dosage: 20 ug, qd
     Route: 065
  2. FORTEO [Suspect]
     Dosage: 20 ug, qd
     Route: 065
     Dates: start: 201210

REACTIONS (4)
  - Hip fracture [Unknown]
  - Fall [Unknown]
  - Poor quality sleep [Unknown]
  - Dizziness [Unknown]
